FAERS Safety Report 7503504-8 (Version None)
Quarter: 2011Q2

REPORT INFORMATION
  Report Type: 
  Country: None (occurrence: None)
  Receive Date: 20110525
  Receipt Date: 20110512
  Transmission Date: 20111010
  Serious: Yes (Hospitalization)
  Sender: FDA-Public Use
  Company Number: PHHY2011DE41054

PATIENT
  Sex: Female
  Weight: 76 kg

DRUGS (9)
  1. MCP [Concomitant]
     Dosage: 3X 20 DROPS/DAY
     Dates: start: 20110124
  2. NOVALGIN [Concomitant]
     Dosage: 500 MG, /DAY   4X
     Dates: start: 20110124
  3. TARGIN [Concomitant]
     Dosage: 10/5 MG   1X 1 TABLET/DAY
     Dates: start: 20110124
  4. ZOMETA [Suspect]
     Indication: PROPHYLAXIS
     Dosage: 4 MG,
     Route: 042
     Dates: start: 20110408
  5. DEXAMETHASONE [Concomitant]
     Dosage: 8 MG, /DAY   3X
     Dates: start: 20110124
  6. MELPHALAN HYDROCHLORIDE [Concomitant]
     Dosage: UNK
     Dates: start: 20110418
  7. PANTOPRAZOLE [Concomitant]
     Dosage: 20 MG,/DAY   2X
     Dates: start: 20110124
  8. BORTEZOMIB [Concomitant]
     Dosage: UNK
     Dates: start: 20110418
  9. RAMIPRIL [Concomitant]
     Dosage: 10MG /DAY   2X
     Dates: start: 20110124

REACTIONS (1)
  - HUMERUS FRACTURE [None]
